FAERS Safety Report 8791596 (Version 1)
Quarter: 2012Q4

REPORT INFORMATION
  Report Type: 
  Country: DE (occurrence: DE)
  Receive Date: 20120918
  Receipt Date: 20120918
  Transmission Date: 20130627
  Serious: Yes (Other)
  Sender: FDA-Public Use
  Company Number: GXKR2012DE002937

PATIENT

DRUGS (2)
  1. SERTRALINE [Suspect]
     Indication: DEPRESSION
     Dosage: 25 mg/day (gw0- gw38.1)
     Route: 048
     Dates: start: 20110410, end: 20120102
  2. FOLIC ACID [Concomitant]
     Indication: PROPHYLAXIS OF NEURAL TUBE DEFECT
     Dosage: 0.8 mg/day (gw0 - gw13)
     Route: 048
     Dates: start: 20110410

REACTIONS (3)
  - Stillbirth [Recovered/Resolved]
  - Placental insufficiency [Unknown]
  - Maternal exposure during pregnancy [Unknown]
